FAERS Safety Report 10049127 (Version 1)
Quarter: 2014Q2

REPORT INFORMATION
  Report Type: Report from Study
  Country: US (occurrence: US)
  Receive Date: 20140401
  Receipt Date: 20140401
  Transmission Date: 20141212
  Serious: Yes (Other)
  Sender: FDA-Public Use
  Company Number: US-ROCHE-1370914

PATIENT
  Sex: Female
  Weight: 24.1 kg

DRUGS (5)
  1. NUTROPIN AQ [Suspect]
     Indication: GROWTH HORMONE DEFICIENCY
     Route: 058
  2. OMEPRAZOLE [Concomitant]
     Route: 048
  3. FOLIC ACID [Concomitant]
     Route: 048
  4. CREON [Concomitant]
     Route: 065
  5. VITAMIN D3 [Concomitant]
     Route: 048

REACTIONS (2)
  - Febrile convulsion [Unknown]
  - Glycosylated haemoglobin increased [Unknown]
